FAERS Safety Report 10583859 (Version 1)
Quarter: 2014Q4

REPORT INFORMATION
  Report Type: Spontaneous
  Country: US (occurrence: None)
  Receive Date: 20141113
  Receipt Date: 20141113
  Transmission Date: 20150529
  Serious: Yes (Death)
  Sender: FDA-Public Use
  Company Number: None

PATIENT
  Age: 68 Year
  Sex: Female
  Weight: 81.65 kg

DRUGS (3)
  1. THYROID MEDICATION [Concomitant]
     Active Substance: UNSPECIFIED INGREDIENT
  2. OXYGEN. [Concomitant]
     Active Substance: OXYGEN
  3. VPRIV [Suspect]
     Active Substance: VELAGLUCERASE ALFA
     Indication: GAUCHER^S DISEASE
     Dosage: 4800 INTERNATIONAL UNITS IV OVER 1 HOUR
     Route: 042
     Dates: start: 20110112, end: 20130520

REACTIONS (4)
  - Asthenia [None]
  - Wheelchair user [None]
  - Oxygen saturation decreased [None]
  - Fluid retention [None]

NARRATIVE: CASE EVENT DATE: 20130509
